FAERS Safety Report 12351628 (Version 12)
Quarter: 2023Q4

REPORT INFORMATION
  Report Type: Spontaneous
  Country: CA (occurrence: CA)
  Receive Date: 20160510
  Receipt Date: 20231128
  Transmission Date: 20240109
  Serious: Yes (Death, Hospitalization, Disabling, Other)
  Sender: FDA-Public Use
  Company Number: CA-009507513-1603CAN002558

PATIENT
  Sex: Male
  Weight: 92 kg

DRUGS (52)
  1. CUBICIN [Suspect]
     Active Substance: DAPTOMYCIN
     Indication: Paraspinal abscess
     Dosage: 900 MG, 1 EVERY DAY (APPROX 10MG/KG)
     Route: 042
     Dates: start: 20160120, end: 20160121
  2. CUBICIN [Suspect]
     Active Substance: DAPTOMYCIN
     Indication: Osteomyelitis
     Dosage: 700 MG, 1 EVERY DAY (APPROX 8MG/KG)
     Route: 042
     Dates: start: 20160122, end: 20160226
  3. CUBICIN [Suspect]
     Active Substance: DAPTOMYCIN
     Indication: Intervertebral discitis
  4. CUBICIN [Suspect]
     Active Substance: DAPTOMYCIN
     Indication: Sepsis
  5. CUBICIN [Suspect]
     Active Substance: DAPTOMYCIN
     Indication: Inadequate diet
  6. CUBICIN [Suspect]
     Active Substance: DAPTOMYCIN
     Indication: Burkholderia cepacia complex infection
  7. CUBICIN [Suspect]
     Active Substance: DAPTOMYCIN
     Indication: Oesophageal abscess
  8. CEFTAROLINE FOSAMIL [Suspect]
     Active Substance: CEFTAROLINE FOSAMIL
     Indication: Paraspinal abscess
     Dosage: 300 MG, 1 EVERY 12 HOURS
     Route: 042
     Dates: start: 20160322, end: 20160401
  9. CEFTAROLINE FOSAMIL [Suspect]
     Active Substance: CEFTAROLINE FOSAMIL
     Indication: Osteomyelitis
  10. CEFTAROLINE FOSAMIL [Suspect]
     Active Substance: CEFTAROLINE FOSAMIL
     Indication: Intervertebral discitis
  11. CEFTAROLINE FOSAMIL [Suspect]
     Active Substance: CEFTAROLINE FOSAMIL
     Indication: Sepsis
  12. CEFTAROLINE FOSAMIL [Suspect]
     Active Substance: CEFTAROLINE FOSAMIL
     Indication: Oesophageal abscess
  13. CEFTAROLINE FOSAMIL [Suspect]
     Active Substance: CEFTAROLINE FOSAMIL
     Indication: Inadequate diet
  14. CEFTAROLINE FOSAMIL [Suspect]
     Active Substance: CEFTAROLINE FOSAMIL
     Indication: Burkholderia cepacia complex infection
  15. DOXYCYCLINE HYCLATE [Suspect]
     Active Substance: DOXYCYCLINE HYCLATE
     Indication: Paraspinal abscess
     Dosage: 100 MILLIGRAM, BID
     Route: 048
  16. DOXYCYCLINE HYCLATE [Suspect]
     Active Substance: DOXYCYCLINE HYCLATE
     Indication: Osteomyelitis
  17. DOXYCYCLINE HYCLATE [Suspect]
     Active Substance: DOXYCYCLINE HYCLATE
     Indication: Intervertebral discitis
  18. DOXYCYCLINE HYCLATE [Suspect]
     Active Substance: DOXYCYCLINE HYCLATE
     Indication: Oesophageal abscess
  19. DOXYCYCLINE HYCLATE [Suspect]
     Active Substance: DOXYCYCLINE HYCLATE
     Indication: Osteomyelitis
  20. DOXYCYCLINE HYCLATE [Suspect]
     Active Substance: DOXYCYCLINE HYCLATE
     Indication: Sepsis
  21. DOXYCYCLINE HYCLATE [Suspect]
     Active Substance: DOXYCYCLINE HYCLATE
     Indication: Burkholderia cepacia complex infection
  22. LINEZOLID [Suspect]
     Active Substance: LINEZOLID
     Indication: Paraspinal abscess
     Dosage: 600 MILLIGRAM, BID
     Route: 048
  23. LINEZOLID [Suspect]
     Active Substance: LINEZOLID
     Indication: Osteomyelitis
  24. LINEZOLID [Suspect]
     Active Substance: LINEZOLID
     Indication: Intervertebral discitis
  25. LINEZOLID [Suspect]
     Active Substance: LINEZOLID
     Indication: Sepsis
  26. LINEZOLID [Suspect]
     Active Substance: LINEZOLID
     Indication: Inadequate diet
  27. LINEZOLID [Suspect]
     Active Substance: LINEZOLID
     Indication: Burkholderia cepacia complex infection
  28. LINEZOLID [Suspect]
     Active Substance: LINEZOLID
     Indication: Oesophageal abscess
  29. RIFAMPIN [Suspect]
     Active Substance: RIFAMPIN
     Indication: Paraspinal abscess
     Dosage: 300 MILLIGRAM, BID
     Route: 048
  30. RIFAMPIN [Suspect]
     Active Substance: RIFAMPIN
     Indication: Osteomyelitis
  31. RIFAMPIN [Suspect]
     Active Substance: RIFAMPIN
     Indication: Intervertebral discitis
  32. RIFAMPIN [Suspect]
     Active Substance: RIFAMPIN
     Indication: Sepsis
  33. RIFAMPIN [Suspect]
     Active Substance: RIFAMPIN
     Indication: Inadequate diet
  34. RIFAMPIN [Suspect]
     Active Substance: RIFAMPIN
     Indication: Burkholderia cepacia complex infection
  35. RIFAMPIN [Suspect]
     Active Substance: RIFAMPIN
     Indication: Oesophageal abscess
  36. TIGECYCLINE [Suspect]
     Active Substance: TIGECYCLINE
     Indication: Paraspinal abscess
     Dosage: 100 MG, ONCE
     Route: 042
     Dates: start: 20160314, end: 20160314
  37. TIGECYCLINE [Suspect]
     Active Substance: TIGECYCLINE
     Indication: Osteomyelitis
     Dosage: UNK, DOSAGE FORM: POWDER FOR SOLUTION INTRAVENOUS
     Route: 042
  38. TIGECYCLINE [Suspect]
     Active Substance: TIGECYCLINE
     Indication: Intervertebral discitis
     Dosage: 100 MILLIGRAM, 1 EVERY 24 HOUR(S)
     Route: 042
  39. TIGECYCLINE [Suspect]
     Active Substance: TIGECYCLINE
     Indication: Sepsis
     Dosage: 50 MILLIGRAM, BID
     Route: 042
  40. TIGECYCLINE [Suspect]
     Active Substance: TIGECYCLINE
     Indication: Inadequate diet
  41. TIGECYCLINE [Suspect]
     Active Substance: TIGECYCLINE
     Indication: Burkholderia cepacia complex infection
  42. TIGECYCLINE [Suspect]
     Active Substance: TIGECYCLINE
     Indication: Oesophageal abscess
  43. VANCOMYCIN [Suspect]
     Active Substance: VANCOMYCIN
     Indication: Paraspinal abscess
     Dosage: DOSE ADJUSTED TO TARGET TROUGH 15-20 MG/L
     Route: 042
     Dates: start: 20151127, end: 20160120
  44. VANCOMYCIN [Suspect]
     Active Substance: VANCOMYCIN
     Indication: Osteomyelitis
     Dosage: UNK, DOSAGE FORM: NOT SPECIFIED
     Route: 042
  45. VANCOMYCIN [Suspect]
     Active Substance: VANCOMYCIN
     Indication: Intervertebral discitis
  46. VANCOMYCIN [Suspect]
     Active Substance: VANCOMYCIN
     Indication: Sepsis
  47. VANCOMYCIN [Suspect]
     Active Substance: VANCOMYCIN
     Indication: Inadequate diet
  48. VANCOMYCIN [Suspect]
     Active Substance: VANCOMYCIN
     Indication: Burkholderia cepacia complex infection
  49. VANCOMYCIN [Suspect]
     Active Substance: VANCOMYCIN
     Indication: Oesophageal abscess
  50. VANCOMYCIN HYDROCHLORIDE [Suspect]
     Active Substance: VANCOMYCIN HYDROCHLORIDE
     Indication: Paraspinal abscess
     Dosage: UNK
     Route: 065
  51. VANCOMYCIN HYDROCHLORIDE [Suspect]
     Active Substance: VANCOMYCIN HYDROCHLORIDE
     Indication: Osteomyelitis
  52. VANCOMYCIN HYDROCHLORIDE [Suspect]
     Active Substance: VANCOMYCIN HYDROCHLORIDE
     Indication: Intervertebral discitis

REACTIONS (8)
  - General physical health deterioration [Fatal]
  - Hypophagia [Fatal]
  - Staphylococcal infection [Fatal]
  - Treatment failure [Fatal]
  - Transaminases increased [Fatal]
  - Thrombocytopenia [Fatal]
  - Off label use [Fatal]
  - Product use in unapproved indication [Fatal]

NARRATIVE: CASE EVENT DATE: 20160101
